FAERS Safety Report 15240033 (Version 1)
Quarter: 2018Q3

REPORT INFORMATION
  Report Type: Spontaneous
  Country: US (occurrence: US)
  Receive Date: 20180710
  Receipt Date: 20180710
  Transmission Date: 20181010
  Serious: Yes (Disabling)
  Sender: FDA-Public Use
  Company Number: None

PATIENT
  Age: 66 Year
  Sex: Female
  Weight: 90 kg

DRUGS (2)
  1. CIPRO [Suspect]
     Active Substance: CIPROFLOXACIN HYDROCHLORIDE
     Indication: STAPHYLOCOCCAL INFECTION
     Dates: start: 20140601, end: 20140701
  2. ONE?A?DAY NOS [Concomitant]
     Active Substance: MINERALS\VITAMINS

REACTIONS (13)
  - Quality of life decreased [None]
  - Panic attack [None]
  - Hypoaesthesia [None]
  - Agitation [None]
  - Economic problem [None]
  - Crying [None]
  - Feeling drunk [None]
  - Emotional disorder [None]
  - Multi-organ disorder [None]
  - Gait inability [None]
  - Anxiety [None]
  - Mental disorder [None]
  - Loss of employment [None]

NARRATIVE: CASE EVENT DATE: 20140501
